FAERS Safety Report 15076591 (Version 1)
Quarter: 2018Q3

REPORT INFORMATION
  Report Type: Spontaneous
  Country: CZ (occurrence: CZ)
  Receive Date: 20180627
  Receipt Date: 20180627
  Transmission Date: 20181010
  Serious: Yes (Hospitalization)
  Sender: FDA-Public Use
  Company Number: CZ-ACELLA PHARMACEUTICALS, LLC-2050063

PATIENT
  Age: 19 Year
  Sex: Male

DRUGS (1)
  1. BROMPHENIRAMINE MAL, PSEUDOEPHEDRINE HCL, AND DEXTROMETHORPHAN HBR [Suspect]
     Active Substance: BROMPHENIRAMINE MALEATE\DEXTROMETHORPHAN HYDROBROMIDE\PSEUDOEPHEDRINE HYDROCHLORIDE
     Indication: SUICIDE ATTEMPT

REACTIONS (9)
  - Anhedonia [Unknown]
  - Abulia [Unknown]
  - Disturbance in attention [Unknown]
  - Anxiety [Unknown]
  - Personality disorder [Unknown]
  - Affect lability [Unknown]
  - Acute stress disorder [Unknown]
  - Helplessness [Unknown]
  - Feeling abnormal [Unknown]
